FAERS Safety Report 6246003-6 (Version None)
Quarter: 2009Q2

REPORT INFORMATION
  Report Type: 
  Country: None (occurrence: None)
  Receive Date: 20090626
  Receipt Date: 20081021
  Transmission Date: 20091009
  Serious: No
  Sender: FDA-Public Use
  Company Number: A0753059A

PATIENT
  Sex: Male

DRUGS (2)
  1. IMITREX [Suspect]
     Indication: MIGRAINE
     Dosage: 100MG AS REQUIRED
     Route: 048
  2. NASONEX [Concomitant]

REACTIONS (2)
  - BLOOD PRESSURE INCREASED [None]
  - SENSATION OF BLOOD FLOW [None]
